FAERS Safety Report 11097528 (Version 1)
Quarter: 2015Q2

REPORT INFORMATION
  Report Type: Spontaneous
  Country: US (occurrence: None)
  Receive Date: 20150507
  Receipt Date: 20150507
  Transmission Date: 20150821
  Serious: No
  Sender: FDA-Public Use
  Company Number: None

PATIENT
  Age: 67 Year
  Sex: Female
  Weight: 68.6 kg

DRUGS (11)
  1. HYDROCORTISONE. [Concomitant]
     Active Substance: HYDROCORTISONE
  2. OXALIPLATIN. [Suspect]
     Active Substance: OXALIPLATIN
     Indication: RECTAL CANCER
     Route: 042
     Dates: start: 20150505
  3. OXALIPLATIN. [Suspect]
     Active Substance: OXALIPLATIN
     Indication: COLON CANCER
     Route: 042
     Dates: start: 20150505
  4. LEUCOVORIN [Concomitant]
     Active Substance: LEUCOVORIN
  5. OXALIPLATIN. [Suspect]
     Active Substance: OXALIPLATIN
     Indication: COLON CANCER
     Route: 042
     Dates: start: 20150505, end: 20150505
  6. DIPHENHYDRAMINE [Concomitant]
     Active Substance: DIPHENHYDRAMINE
  7. FLUOUROURACIL [Concomitant]
     Active Substance: FLUOROURACIL
  8. OXALIPLATIN. [Suspect]
     Active Substance: OXALIPLATIN
     Indication: RECTAL CANCER
     Route: 042
     Dates: start: 20150505, end: 20150505
  9. DEXAMETHASONE. [Concomitant]
     Active Substance: DEXAMETHASONE
  10. FAMOTIDINE. [Concomitant]
     Active Substance: FAMOTIDINE
  11. PALONOSETRON [Concomitant]
     Active Substance: PALONOSETRON

REACTIONS (10)
  - Ear pain [None]
  - Pruritus [None]
  - Dizziness [None]
  - Infusion related reaction [None]
  - Nasal congestion [None]
  - Limb discomfort [None]
  - Nausea [None]
  - Heart rate decreased [None]
  - Blood pressure decreased [None]
  - Dysphagia [None]

NARRATIVE: CASE EVENT DATE: 20150505
